FAERS Safety Report 7522898-0 (Version None)
Quarter: 2011Q2

REPORT INFORMATION
  Report Type: 
  Country: None (occurrence: None)
  Receive Date: 20110603
  Receipt Date: 20110601
  Transmission Date: 20111010
  Serious: Yes (Life-Threatening, Hospitalization)
  Sender: FDA-Public Use
  Company Number: PHHO2008JP14235

PATIENT
  Sex: Female
  Weight: 49 kg

DRUGS (7)
  1. NEORAL [Suspect]
     Dosage: 250 MG, QD
     Route: 048
     Dates: start: 20081220
  2. EVEROLIMUS [Suspect]
     Dosage: UNK
     Route: 048
     Dates: start: 20081220
  3. NEORAL [Suspect]
     Dosage: 150MG TO 325MG
     Route: 048
     Dates: start: 20081119
  4. PREDNISOLONE [Suspect]
     Indication: RENAL TRANSPLANT
     Dosage: 50 MG, QD
     Route: 048
     Dates: start: 20081119
  5. SIMULECT [Concomitant]
     Indication: RENAL TRANSPLANT
     Dosage: UNK
     Route: 042
  6. EVEROLIMUS [Suspect]
     Indication: RENAL TRANSPLANT
     Dosage: 1.5 MG DALIY
     Route: 048
     Dates: start: 20081119
  7. NEORAL [Suspect]
     Indication: RENAL TRANSPLANT
     Dosage: 325MG TO 350MG
     Route: 048
     Dates: start: 20081116, end: 20081117

REACTIONS (3)
  - VENOUS THROMBOSIS LIMB [None]
  - OEDEMA PERIPHERAL [None]
  - PAIN IN EXTREMITY [None]
